FAERS Safety Report 9122333 (Version 1)
Quarter: 2013Q1

REPORT INFORMATION
  Report Type: Report from Study
  Country: AU (occurrence: AU)
  Receive Date: 20130227
  Receipt Date: 20130227
  Transmission Date: 20140127
  Serious: Yes (Hospitalization, Other)
  Sender: FDA-Public Use
  Company Number: PHHY2013AU017809

PATIENT
  Sex: Female

DRUGS (5)
  1. CLOZARIL [Suspect]
     Dosage: 100 MG, UNK
     Dates: start: 20130207
  2. CLOZARIL [Suspect]
     Dosage: 12.5 MG, UNK
  3. CLOZARIL [Suspect]
     Dosage: 12.5 MG, UNK
  4. CLOZARIL [Suspect]
     Dosage: 25 MG, UNK
     Dates: end: 20130217
  5. WARFARIN [Concomitant]

REACTIONS (6)
  - Pulmonary embolism [Unknown]
  - Malaise [Unknown]
  - Haemorrhage [Unknown]
  - Anaemia [Unknown]
  - Gastrointestinal disorder [Unknown]
  - Hypotension [Unknown]
